FAERS Safety Report 7312396-1 (Version None)
Quarter: 2011Q1

REPORT INFORMATION
  Report Type: 
  Country: None (occurrence: None)
  Receive Date: 20110214
  Receipt Date: 20110201
  Transmission Date: 20110831
  Serious: Yes (Hospitalization)
  Sender: FDA-Public Use
  Company Number: 822230

PATIENT
  Age: 70 Year
  Sex: Female

DRUGS (9)
  1. (ATORVASTATIN) [Concomitant]
  2. BISOPROLOL FUMARATE [Concomitant]
  3. DOBUTAMINE HCL [Suspect]
     Indication: CHEST PAIN
     Dates: start: 20101124, end: 20101124
  4. DOBUTAMINE HCL [Suspect]
     Indication: STRESS ECHOCARDIOGRAM
     Dates: start: 20101124, end: 20101124
  5. (ASPIRIN) [Concomitant]
  6. (BENDROFLUMETHIAZIDE) [Concomitant]
  7. (SONOVUE) [Suspect]
     Indication: STRESS ECHOCARDIOGRAM
     Dosage: 3 ML MILLILITRE(S) ( 1 DAY ) INTRAVENOUS (NOT OTHERWISE SPECIFIED)
     Route: 042
     Dates: start: 20101124, end: 20101124
  8. (SONOVUE) [Suspect]
     Indication: CHEST PAIN
     Dosage: 3 ML MILLILITRE(S) ( 1 DAY ) INTRAVENOUS (NOT OTHERWISE SPECIFIED)
     Route: 042
     Dates: start: 20101124, end: 20101124
  9. ISOSORBIDE MONONITRATE [Concomitant]

REACTIONS (8)
  - CHEST PAIN [None]
  - DYSGEUSIA [None]
  - DRY MOUTH [None]
  - DYSARTHRIA [None]
  - DEPRESSED LEVEL OF CONSCIOUSNESS [None]
  - DRY THROAT [None]
  - UNRESPONSIVE TO STIMULI [None]
  - TRANSIENT ISCHAEMIC ATTACK [None]
